FAERS Safety Report 10953342 (Version 8)
Quarter: 2015Q3

REPORT INFORMATION
  Report Type: Spontaneous
  Country: US (occurrence: US)
  Receive Date: 20150325
  Receipt Date: 20150706
  Transmission Date: 20151125
  Serious: No
  Sender: FDA-Public Use
  Company Number: US-PFIZER INC-2015099948

PATIENT
  Age: 60 Year
  Sex: Male
  Weight: 85 kg

DRUGS (13)
  1. LYRICA [Suspect]
     Active Substance: PREGABALIN
     Indication: COMPLEX REGIONAL PAIN SYNDROME
     Dosage: 150MG AND 300MG, 2X/DAY
     Dates: start: 201502
  2. LYRICA [Suspect]
     Active Substance: PREGABALIN
     Dosage: 300 MG, 1X/DAY
  3. OXYCODONE [Concomitant]
     Active Substance: OXYCODONE
     Indication: PAIN
  4. GABAPENTIN. [Concomitant]
     Active Substance: GABAPENTIN
     Indication: WEANING FAILURE
     Dosage: 400 MG, 2X/DAY
  5. GABAPENTIN. [Concomitant]
     Active Substance: GABAPENTIN
     Dosage: 600 MG, 4X/DAY FOR 28 DAYS
     Route: 048
  6. LISINOPRIL. [Concomitant]
     Active Substance: LISINOPRIL
     Indication: BLOOD PRESSURE MEASUREMENT
     Dosage: 40 MG TABLET, ONE-HALF TABLET ONCE A DAY
     Route: 048
  7. LYRICA [Suspect]
     Active Substance: PREGABALIN
     Dosage: UNK (50MG QHS TITRATING, PATIENT UPTO 300QHS)
     Route: 048
     Dates: start: 20150224, end: 20150624
  8. CIALIS [Concomitant]
     Active Substance: TADALAFIL
     Indication: BENIGN PROSTATIC HYPERPLASIA
     Dosage: 5 MG, 1X/DAY
     Route: 048
  9. MELOXICAM. [Concomitant]
     Active Substance: MELOXICAM
     Indication: INFLAMMATION
     Dosage: 15 MG, 1X/DAY
     Route: 048
  10. LYRICA [Suspect]
     Active Substance: PREGABALIN
     Indication: NEUROPATHY PERIPHERAL
     Dosage: 300 MG, 1X/DAY
     Dates: start: 20150217
  11. OXYCODONE [Concomitant]
     Active Substance: OXYCODONE
     Indication: COMPLEX REGIONAL PAIN SYNDROME
     Dosage: 7.5-325MG ONCE A DAY
     Route: 048
  12. LYRICA [Suspect]
     Active Substance: PREGABALIN
     Dosage: 300 MG 2 DAILY
  13. LYRICA [Suspect]
     Active Substance: PREGABALIN
     Dosage: 300 MG, 1X/DAY [QHS (AT BED TIME)]
     Route: 048
     Dates: start: 20150217, end: 201504

REACTIONS (16)
  - Loss of libido [Not Recovered/Not Resolved]
  - Personality change [Unknown]
  - Drug ineffective for unapproved indication [Not Recovered/Not Resolved]
  - Somnolence [Unknown]
  - Memory impairment [Not Recovered/Not Resolved]
  - Nervousness [Unknown]
  - Fatigue [Not Recovered/Not Resolved]
  - Drooling [Unknown]
  - Malaise [Unknown]
  - Mental status changes [Unknown]
  - Aggression [Unknown]
  - Paraesthesia [Unknown]
  - Overdose [Unknown]
  - Anger [Not Recovered/Not Resolved]
  - Blood triglycerides increased [Unknown]
  - Tremor [Recovering/Resolving]

NARRATIVE: CASE EVENT DATE: 201502
